FAERS Safety Report 23350842 (Version 2)
Quarter: 2024Q1

REPORT INFORMATION
  Report Type: Spontaneous
  Country: US (occurrence: US)
  Receive Date: 20231229
  Receipt Date: 20240109
  Transmission Date: 20240409
  Serious: No
  Sender: FDA-Public Use
  Company Number: US-PFIZER INC-PV202300206073

PATIENT
  Age: 92 Year
  Sex: Female

DRUGS (1)
  1. IBRANCE [Suspect]
     Active Substance: PALBOCICLIB
     Dosage: 75MG DAILY FOR 14DAYS ON 7DAYS OFF, 21 DAY CYCLE
     Route: 048

REACTIONS (2)
  - Neutrophil count decreased [Unknown]
  - Off label use [Unknown]
